FAERS Safety Report 8863334 (Version 3)
Quarter: 2012Q4

REPORT INFORMATION
  Report Type: 
  Country: CA (occurrence: CA)
  Receive Date: 20121025
  Receipt Date: 20121206
  Transmission Date: 20130627
  Serious: Yes (Other)
  Sender: FDA-Public Use
  Company Number: CA-INCYTE CORPORATION-2012IN001821

PATIENT
  Age: 55 Year
  Sex: Female

DRUGS (5)
  1. JAKAVI [Suspect]
     Indication: MYELOFIBROSIS
     Dosage: 20 mg, bid
     Route: 048
     Dates: start: 20120108, end: 20121030
  2. JAKAVI [Suspect]
     Dosage: 20 mg, bid
     Route: 048
     Dates: start: 20120808
  3. ZOPICLONE [Concomitant]
  4. MAXALT [Concomitant]
  5. MULTI-VIT [Concomitant]

REACTIONS (11)
  - Pneumonia [Not Recovered/Not Resolved]
  - Visual impairment [Not Recovered/Not Resolved]
  - Nausea [Unknown]
  - Tremor [Unknown]
  - Hypoaesthesia [Not Recovered/Not Resolved]
  - Burning sensation [Unknown]
  - Muscle tightness [Unknown]
  - Chest discomfort [Unknown]
  - Headache [Unknown]
  - Fatigue [Unknown]
  - Night sweats [Not Recovered/Not Resolved]
